FAERS Safety Report 13635167 (Version 1)
Quarter: 2017Q2

REPORT INFORMATION
  Report Type: Spontaneous
  Country: US (occurrence: US)
  Receive Date: 20170531
  Receipt Date: 20170531
  Transmission Date: 20170830
  Serious: No
  Sender: FDA-Public Use
  Company Number: US-ASTELLAS-1692074

PATIENT
  Age: 59 Year
  Sex: Female

DRUGS (8)
  1. DOXYCYCLINE. [Concomitant]
     Active Substance: DOXYCYCLINE
     Route: 065
     Dates: start: 20151006, end: 20160317
  2. MEMANTINE HCL [Concomitant]
     Active Substance: MEMANTINE
  3. TARCEVA [Suspect]
     Active Substance: ERLOTINIB HYDROCHLORIDE
     Indication: LUNG NEOPLASM MALIGNANT
     Dosage: TAKE 1 TABLET BY MOUTHEVERY DAY
     Route: 048
  4. FISH OIL [Concomitant]
     Active Substance: FISH OIL
  5. LEVOTHYROXINE SODIUM. [Concomitant]
     Active Substance: LEVOTHYROXINE SODIUM
  6. VITAMIN C [Concomitant]
     Active Substance: ASCORBIC ACID
  7. XGEVA [Concomitant]
     Active Substance: DENOSUMAB
  8. TURMERIC [Concomitant]
     Active Substance: HERBALS\TURMERIC

REACTIONS (13)
  - Lung disorder [Unknown]
  - Nausea [Unknown]
  - Depression [Unknown]
  - Pain in extremity [Unknown]
  - Palmar-plantar erythrodysaesthesia syndrome [Unknown]
  - Abdominal discomfort [Unknown]
  - Abdominal pain [Unknown]
  - Rash [Recovered/Resolved]
  - Vomiting [Unknown]
  - Muscle spasms [Recovered/Resolved]
  - Dizziness [Unknown]
  - Alopecia [Unknown]
  - Dry skin [Recovered/Resolved]
